FAERS Safety Report 24006074 (Version 1)
Quarter: 2024Q2

REPORT INFORMATION
  Report Type: Spontaneous
  Country: US (occurrence: None)
  Receive Date: 20240620
  Receipt Date: 20240620
  Transmission Date: 20240715
  Serious: No
  Sender: FDA-Public Use
  Company Number: None

PATIENT
  Age: 50 Year
  Sex: Female
  Weight: 75.3 kg

DRUGS (3)
  1. LECITHIN [Suspect]
     Active Substance: LECITHIN
     Indication: Localised lipodystrophy
     Dates: start: 20240502, end: 20240525
  2. SODIUM DESOXYCHOLATE [Suspect]
     Active Substance: SODIUM DESOXYCHOLATE
  3. VITAMINS [Suspect]
     Active Substance: VITAMINS

REACTIONS (2)
  - Paraesthesia [None]
  - Nodule [None]

NARRATIVE: CASE EVENT DATE: 20240620
